FAERS Safety Report 7450499-1 (Version None)
Quarter: 2011Q2

REPORT INFORMATION
  Report Type: 
  Country: None (occurrence: None)
  Receive Date: 20110502
  Receipt Date: 20110423
  Transmission Date: 20111010
  Serious: Yes (Hospitalization)
  Sender: FDA-Public Use
  Company Number: US-BRISTOL-MYERS SQUIBB COMPANY-15683014

PATIENT
  Age: 90 Year
  Sex: Male

DRUGS (6)
  1. PROCARBAZINE [Suspect]
     Indication: HODGKIN'S DISEASE
     Dosage: NO OF CYCLES:4
  2. CYCLOPHOSPHAMIDE [Suspect]
     Indication: HODGKIN'S DISEASE
  3. ADRIAMYCIN PFS [Suspect]
     Indication: HODGKIN'S DISEASE
     Dosage: NO OF CYCLES:3
  4. VINBLASTINE [Suspect]
     Indication: HODGKIN'S DISEASE
     Dosage: NO OF CYCLES:4
  5. DACARBAZINE [Suspect]
     Indication: HODGKIN'S DISEASE
     Dosage: NO OF CYCLES:3
  6. PREDNISOLONE [Suspect]
     Indication: HODGKIN'S DISEASE
     Dosage: NO OF CYCLES:4

REACTIONS (3)
  - HYPOCALCAEMIA [None]
  - BLOOD MAGNESIUM DECREASED [None]
  - MUSCULAR WEAKNESS [None]
